FAERS Safety Report 9971735 (Version 1)
Quarter: 2014Q1

REPORT INFORMATION
  Report Type: Report from Study
  Country: US (occurrence: US)
  Receive Date: 20140306
  Receipt Date: 20140306
  Transmission Date: 20141002
  Serious: No
  Sender: FDA-Public Use
  Company Number: US-ABBVIE-13P-163-1152688-00

PATIENT
  Age: 45 Year
  Sex: Female

DRUGS (8)
  1. HUMIRA [Suspect]
     Indication: CROHN^S DISEASE
     Dates: start: 20130608
  2. IMURAN [Concomitant]
     Indication: CROHN^S DISEASE
     Dosage: 50MG DAILY
  3. CITALOPRAM [Concomitant]
     Indication: ANXIETY
     Dosage: 10MG DAILY
  4. KARIVA [Concomitant]
     Indication: CONTRACEPTION
  5. CALCIUM [Concomitant]
     Indication: MINERAL SUPPLEMENTATION
  6. VITAMIN E [Concomitant]
     Indication: VITAMIN SUPPLEMENTATION
  7. RED YEAST RICE [Concomitant]
     Indication: BLOOD CHOLESTEROL INCREASED
  8. LEVSIN [Concomitant]
     Indication: ABDOMINAL PAIN

REACTIONS (1)
  - Oropharyngeal pain [Not Recovered/Not Resolved]
